FAERS Safety Report 16036658 (Version 1)
Quarter: 2019Q1

REPORT INFORMATION
  Report Type: Spontaneous
  Country: US (occurrence: US)
  Receive Date: 20190305
  Receipt Date: 20190305
  Transmission Date: 20190418
  Serious: No
  Sender: FDA-Public Use
  Company Number: US-IMPAX LABORATORIES, LLC-2018-IPXL-02927

PATIENT
  Age: 66 Year
  Sex: Male

DRUGS (3)
  1. RYTARY [Suspect]
     Active Substance: CARBIDOPA\LEVODOPA
     Indication: PARKINSON^S DISEASE
     Dosage: 23.75/95 MG, ONE CAPSULE, FIVE TIMES A DAY
     Route: 065
     Dates: start: 201801, end: 2018
  2. CARBIDOPA/LEVODOPA [Concomitant]
     Active Substance: CARBIDOPA\LEVODOPA
     Indication: PARKINSON^S DISEASE
     Dosage: 25/100 MG, 1 DOSAGE FORM, AS NEEDED
     Route: 065
     Dates: start: 2018
  3. RYTARY [Suspect]
     Active Substance: CARBIDOPA\LEVODOPA
     Dosage: 36.25/145 MG TWO CAPSULES FIVE TIMES DAILY
     Route: 065
     Dates: start: 2018

REACTIONS (2)
  - Therapeutic response shortened [Unknown]
  - Asthenia [Unknown]

NARRATIVE: CASE EVENT DATE: 2018
